FAERS Safety Report 6657569-6 (Version None)
Quarter: 2010Q1

REPORT INFORMATION
  Report Type: 
  Country: None (occurrence: None)
  Receive Date: 20100330
  Receipt Date: 20100319
  Transmission Date: 20100710
  Serious: Yes (Death)
  Sender: FDA-Public Use
  Company Number: US-BAXTER-2010BH007665

PATIENT
  Sex: Male

DRUGS (1)
  1. DIANEAL [Suspect]
     Indication: PERITONEAL DIALYSIS
     Route: 033
     Dates: end: 20100317

REACTIONS (4)
  - CARDIAC DISORDER [None]
  - INTESTINAL ISCHAEMIA [None]
  - MYOCARDIAL INFARCTION [None]
  - SHOCK [None]
